FAERS Safety Report 11054576 (Version 3)
Quarter: 2015Q3

REPORT INFORMATION
  Report Type: Spontaneous
  Country: US (occurrence: US)
  Receive Date: 20150422
  Receipt Date: 20150824
  Transmission Date: 20151125
  Serious: Yes (Other)
  Sender: FDA-Public Use
  Company Number: US-ROCHE-1563496

PATIENT
  Sex: Male
  Weight: 92.16 kg

DRUGS (7)
  1. PEGASYS [Suspect]
     Active Substance: PEGINTERFERON ALFA-2A
     Indication: HEPATITIS C
     Dosage: 180 MCG/0.5 ML
     Route: 058
     Dates: start: 20150401
  2. HYDROCHLOROTHIAZIDE. [Concomitant]
     Active Substance: HYDROCHLOROTHIAZIDE
     Route: 048
  3. PROAIR HFA [Concomitant]
     Active Substance: ALBUTEROL SULFATE
     Route: 065
  4. COPEGUS [Suspect]
     Active Substance: RIBAVIRIN
     Indication: HEPATITIS C
     Route: 048
     Dates: start: 20150401
  5. INCIVEK [Suspect]
     Active Substance: TELAPREVIR
     Indication: HEPATITIS C
     Route: 048
     Dates: start: 20150401
  6. LISINOPRIL. [Concomitant]
     Active Substance: LISINOPRIL
     Route: 048
  7. COMBIVENT [Concomitant]
     Active Substance: ALBUTEROL SULFATE\IPRATROPIUM BROMIDE
     Route: 065

REACTIONS (7)
  - Oral candidiasis [Not Recovered/Not Resolved]
  - Skin irritation [Not Recovered/Not Resolved]
  - Tongue disorder [Not Recovered/Not Resolved]
  - Candida infection [Not Recovered/Not Resolved]
  - Bronchitis [Recovered/Resolved]
  - Proctalgia [Not Recovered/Not Resolved]
  - Diarrhoea [Not Recovered/Not Resolved]
